FAERS Safety Report 5087475-2 (Version None)
Quarter: 2006Q3

REPORT INFORMATION
  Report Type: 
  Country: None (occurrence: None)
  Receive Date: 20060823
  Receipt Date: 20060823
  Transmission Date: 20061208
  Serious: Yes (Disabling)
  Sender: FDA-Public Use
  Company Number: None

PATIENT
  Age: 32 Year
  Sex: Male
  Weight: 73.9 kg

DRUGS (1)
  1. CODEINE SUL TAB [Suspect]
     Indication: PAIN

REACTIONS (2)
  - HYPERSENSITIVITY [None]
  - OVERDOSE [None]
